FAERS Safety Report 5442737-1 (Version None)
Quarter: 2007Q3

REPORT INFORMATION
  Report Type: 
  Country: None (occurrence: None)
  Receive Date: 20070904
  Receipt Date: 20070817
  Transmission Date: 20080115
  Serious: No
  Sender: FDA-Public Use
  Company Number: US-BOEHRINGER INGELHEIM PHARMACEUTICALS, INC.-2007-BP-18529BP

PATIENT
  Sex: Male

DRUGS (2)
  1. FLOMAX [Suspect]
     Indication: BENIGN PROSTATIC HYPERPLASIA
     Route: 048
  2. TOPROL-XL [Concomitant]

REACTIONS (7)
  - DIZZINESS [None]
  - LETHARGY [None]
  - MUSCLE TWITCHING [None]
  - PALPITATIONS [None]
  - POLLAKIURIA [None]
  - TREMOR [None]
  - URINARY INCONTINENCE [None]
